FAERS Safety Report 10085743 (Version 1)
Quarter: 2014Q2

REPORT INFORMATION
  Report Type: Spontaneous
  Country: IN (occurrence: IN)
  Receive Date: 20140418
  Receipt Date: 20140418
  Transmission Date: 20141212
  Serious: Yes (Death)
  Sender: FDA-Public Use
  Company Number: IN-SUN PHARMACEUTICAL INDUSTRIES LTD-2014SUN00786

PATIENT
  Age: 63 Year
  Sex: Female

DRUGS (5)
  1. PACLITAXEL SUN 6MG/ML KONZENTRAT ZUR HERSTELLUNG EINER INFUSIONSL?SUNG [Suspect]
     Indication: OESOPHAGEAL CARCINOMA
     Route: 065
  2. DOCETAXEL [Suspect]
     Indication: OESOPHAGEAL CARCINOMA
  3. CARBOPLATIN [Concomitant]
     Indication: OESOPHAGEAL CARCINOMA
     Route: 065
  4. CISPLATIN [Concomitant]
     Indication: OESOPHAGEAL CARCINOMA
     Dosage: UNK
     Route: 065
     Dates: start: 201209, end: 201212
  5. 5-FLUOROURACIL [Concomitant]
     Indication: OESOPHAGEAL CARCINOMA
     Dosage: UNK
     Route: 065
     Dates: start: 201209, end: 201212

REACTIONS (1)
  - Pneumonitis [Fatal]
